FAERS Safety Report 16112362 (Version 1)
Quarter: 2019Q2

REPORT INFORMATION
  Report Type: Spontaneous
  Country: US (occurrence: US)
  Receive Date: 20190324
  Receipt Date: 20190324
  Transmission Date: 20190711
  Serious: Yes (Disabling)
  Sender: FDA-Public Use
  Company Number: None

PATIENT
  Age: 58 Year
  Sex: Female
  Weight: 60.75 kg

DRUGS (15)
  1. DICLOFENAC [Concomitant]
     Active Substance: DICLOFENAC
  2. TURMERIC [Concomitant]
     Active Substance: HERBALS\TURMERIC
  3. LEVAQUIN ( GENERIC FORM) [Suspect]
     Active Substance: LEVOFLOXACIN
     Indication: BRONCHITIS
     Dosage: ?          QUANTITY:10 TABLET(S);?
     Route: 048
     Dates: start: 20190226, end: 20190306
  4. FEM/HT [Concomitant]
  5. CENTRUM SILVER [Concomitant]
     Active Substance: MINERALS\VITAMINS
  6. ZYRTEC [Concomitant]
     Active Substance: CETIRIZINE HYDROCHLORIDE
  7. TOPROL XL-25 [Concomitant]
  8. MAGNESIUM [Concomitant]
     Active Substance: MAGNESIUM
  9. LEUTIN [Concomitant]
  10. KRILL OIL [Concomitant]
     Active Substance: DIETARY SUPPLEMENT
  11. CALTRATE [Concomitant]
     Active Substance: CALCIUM CARBONATE
  12. ZYXEL [Concomitant]
  13. VITAMIN C [Concomitant]
     Active Substance: ASCORBIC ACID
  14. COQ10 [Concomitant]
     Active Substance: UBIDECARENONE
  15. ARMOUR THYROID-30 [Concomitant]

REACTIONS (9)
  - Mitochondrial cytopathy [None]
  - Muscular weakness [None]
  - Tendon disorder [None]
  - Connective tissue disorder [None]
  - Fatigue [None]
  - Muscle injury [None]
  - Rotator cuff syndrome [None]
  - Overdose [None]
  - Musculoskeletal pain [None]

NARRATIVE: CASE EVENT DATE: 20190306
